FAERS Safety Report 8035806-3 (Version None)
Quarter: 2012Q1

REPORT INFORMATION
  Report Type: 
  Country: None (occurrence: None)
  Receive Date: 20120111
  Receipt Date: 20120105
  Transmission Date: 20120608
  Serious: Yes (Hospitalization)
  Sender: FDA-Public Use
  Company Number: CA-BRISTOL-MYERS SQUIBB COMPANY-16324287

PATIENT
  Age: 59 Year
  Sex: Male

DRUGS (13)
  1. ALLOPURINOL [Concomitant]
  2. TIMOLOL MALEATE [Concomitant]
     Indication: GLAUCOMA
     Dosage: EYE DROP
  3. FUROSEMIDE [Concomitant]
  4. METOPROLOL [Concomitant]
  5. TRAVATAN [Concomitant]
     Indication: GLAUCOMA
     Dosage: EYE DROPS
  6. ORENCIA [Suspect]
     Indication: RHEUMATOID ARTHRITIS
     Dosage: NO OF INF:1 LAST INF ON 09DEC2011
     Route: 042
     Dates: start: 20111209
  7. WARFARIN SODIUM [Concomitant]
  8. GLICLAZIDE [Concomitant]
  9. METHOTREXATE [Concomitant]
     Dosage: METHOTREXATE INJECTION
  10. PANTOPRAZOLE SODIUM [Concomitant]
  11. COD LIVER OIL [Concomitant]
  12. CADUET [Concomitant]
  13. VITAMIN C [Concomitant]

REACTIONS (10)
  - ASTHENIA [None]
  - DYSPNOEA [None]
  - FATIGUE [None]
  - MUSCLE SPASMS [None]
  - POOR VENOUS ACCESS [None]
  - PNEUMONIA [None]
  - COUGH [None]
  - THROAT IRRITATION [None]
  - VIRAL INFECTION [None]
  - HEADACHE [None]
